FAERS Safety Report 4551532-7 (Version None)
Quarter: 2005Q1

REPORT INFORMATION
  Report Type: 
  Country: None (occurrence: None)
  Receive Date: 20050110
  Receipt Date: 20050110
  Transmission Date: 20050727
  Serious: Yes (Disabling)
  Sender: FDA-Public Use
  Company Number: None

PATIENT
  Age: 13 Month
  Sex: Male
  Weight: 11.3399 kg

DRUGS (8)
  1. SYNAGIS [Suspect]
     Indication: ASTHMA
     Dosage: MONTHLY   INTRAMUSCULAR
     Route: 030
     Dates: start: 20040129, end: 20040429
  2. SYNAGIS [Suspect]
     Indication: PREMATURE BABY
     Dosage: MONTHLY   INTRAMUSCULAR
     Route: 030
     Dates: start: 20040129, end: 20040429
  3. SYNAGIS [Suspect]
     Indication: TWIN PREGNANCY
     Dosage: MONTHLY   INTRAMUSCULAR
     Route: 030
     Dates: start: 20040129, end: 20040429
  4. SYNAGIS [Suspect]
     Indication: ASTHMA
     Dosage: MONTHLY   INTRAMUSCULAR
     Route: 030
     Dates: start: 20041014, end: 20050105
  5. SYNAGIS [Suspect]
     Indication: PREMATURE BABY
     Dosage: MONTHLY   INTRAMUSCULAR
     Route: 030
     Dates: start: 20041014, end: 20050105
  6. SYNAGIS [Suspect]
     Indication: TWIN PREGNANCY
     Dosage: MONTHLY   INTRAMUSCULAR
     Route: 030
     Dates: start: 20041014, end: 20050105
  7. PULMICORT [Concomitant]
  8. ALBUTEROL [Concomitant]

REACTIONS (1)
  - WHEEZING [None]
